FAERS Safety Report 12540231 (Version 3)
Quarter: 2016Q3

REPORT INFORMATION
  Report Type: Report from Study
  Country: RO (occurrence: RO)
  Receive Date: 20160708
  Receipt Date: 20160829
  Transmission Date: 20161109
  Serious: Yes (Hospitalization, Other)
  Sender: FDA-Public Use
  Company Number: RO-ABBVIE-16K-135-1670285-00

PATIENT
  Age: 47 Year
  Sex: Male

DRUGS (6)
  1. DUODOPA [Suspect]
     Active Substance: CARBIDOPA\LEVODOPA
     Indication: PARKINSON^S DISEASE
     Dosage: 16/24: MD-10 ML, CR-3.4 ML, ED-1.7 ML
     Route: 050
     Dates: start: 20160607
  2. MADOPAR HBS [Concomitant]
     Active Substance: BENSERAZIDE HYDROCHLORIDE\LEVODOPA
     Indication: PRODUCT USED FOR UNKNOWN INDICATION
     Dosage: 0-0-2
     Route: 048
     Dates: start: 20160601
  3. ISICOM [Concomitant]
     Active Substance: CARBIDOPA\LEVODOPA
     Indication: PRODUCT USED FOR UNKNOWN INDICATION
     Dosage: 0-0-1
     Route: 048
     Dates: start: 20160601
  4. DORMICUM [Concomitant]
     Active Substance: MIDAZOLAM\MIDAZOLAM HYDROCHLORIDE
     Indication: PRODUCT USED FOR UNKNOWN INDICATION
     Dosage: FREQUENCY: 0-0-1
     Dates: start: 201607, end: 20160801
  5. SEROQUEL [Concomitant]
     Active Substance: QUETIAPINE FUMARATE
     Indication: PRODUCT USED FOR UNKNOWN INDICATION
     Dosage: 0-0-1
     Route: 048
     Dates: start: 20160601, end: 20160621
  6. ANXIAR [Concomitant]
     Indication: PRODUCT USED FOR UNKNOWN INDICATION
     Dosage: 1/2-0-1
     Route: 048
     Dates: start: 20160601, end: 20160621

REACTIONS (12)
  - Mania [Unknown]
  - Somatic symptom disorder [Not Recovered/Not Resolved]
  - Abdominal pain [Unknown]
  - Flatulence [Unknown]
  - Suicidal ideation [Unknown]
  - Psychotic disorder [Unknown]
  - Insomnia [Unknown]
  - Anxiety [Not Recovered/Not Resolved]
  - Psychomotor hyperactivity [Unknown]
  - Constipation [Unknown]
  - Treatment noncompliance [Unknown]
  - Weight increased [Unknown]

NARRATIVE: CASE EVENT DATE: 201606
